FAERS Safety Report 11926511 (Version 4)
Quarter: 2016Q1

REPORT INFORMATION
  Report Type: Spontaneous
  Country: CA (occurrence: CA)
  Receive Date: 20160119
  Receipt Date: 20160229
  Transmission Date: 20160526
  Serious: Yes (Other)
  Sender: FDA-Public Use
  Company Number: CA-ROCHE-1696008

PATIENT
  Sex: Female

DRUGS (10)
  1. XOLAIR [Suspect]
     Active Substance: OMALIZUMAB
     Route: 058
     Dates: start: 20150720
  2. VENTOLIN [Concomitant]
     Active Substance: ALBUTEROL SULFATE
  3. PREDNISONE. [Concomitant]
     Active Substance: PREDNISONE
  4. XOLAIR [Suspect]
     Active Substance: OMALIZUMAB
     Indication: ASTHMA
     Route: 058
     Dates: start: 20121030, end: 20150810
  5. XOLAIR [Suspect]
     Active Substance: OMALIZUMAB
     Route: 058
  6. ZENHALE [Concomitant]
     Active Substance: FORMOTEROL FUMARATE\MOMETASONE FUROATE
  7. XOLAIR [Suspect]
     Active Substance: OMALIZUMAB
     Indication: NASAL POLYPS
     Route: 058
     Dates: end: 201510
  8. XOLAIR [Suspect]
     Active Substance: OMALIZUMAB
     Route: 058
     Dates: start: 20160111
  9. SYMBICORT [Concomitant]
     Active Substance: BUDESONIDE\FORMOTEROL FUMARATE DIHYDRATE
  10. ELTROXIN [Concomitant]
     Active Substance: LEVOTHYROXINE

REACTIONS (8)
  - Asthma [Unknown]
  - Forced expiratory volume decreased [Unknown]
  - Product use issue [Unknown]
  - Abortion spontaneous [Unknown]
  - Maternal exposure during pregnancy [Unknown]
  - Middle insomnia [Unknown]
  - Gastrooesophageal reflux disease [Unknown]
  - Urticaria [Unknown]

NARRATIVE: CASE EVENT DATE: 2015
